FAERS Safety Report 19774692 (Version 2)
Quarter: 2021Q3

REPORT INFORMATION
  Report Type: Spontaneous
  Country: US (occurrence: US)
  Receive Date: 20210901
  Receipt Date: 20210907
  Transmission Date: 20211014
  Serious: No
  Sender: FDA-Public Use
  Company Number: US-JNJFOC-20210844513

PATIENT
  Age: 58 Year
  Sex: Female
  Weight: 69.4 kg

DRUGS (8)
  1. BENADRYL [Suspect]
     Active Substance: DIPHENHYDRAMINE HYDROCHLORIDE
     Indication: RASH
     Route: 065
     Dates: start: 20210809
  2. IBUPROFEN. [Suspect]
     Active Substance: IBUPROFEN
     Indication: INJECTION SITE REACTION
  3. CLARITIN [Concomitant]
     Active Substance: LORATADINE
     Indication: RASH
     Route: 065
  4. COVID?19 VACCINE [Concomitant]
     Indication: PRODUCT USED FOR UNKNOWN INDICATION
     Route: 030
     Dates: start: 20210806
  5. COVID?19 VACCINE [Concomitant]
     Route: 030
     Dates: start: 20210714
  6. CLARITIN [Concomitant]
     Active Substance: LORATADINE
     Indication: INJECTION SITE REACTION
  7. BENADRYL [Suspect]
     Active Substance: DIPHENHYDRAMINE HYDROCHLORIDE
     Indication: INJECTION SITE REACTION
  8. IBUPROFEN. [Suspect]
     Active Substance: IBUPROFEN
     Indication: RASH
     Route: 065

REACTIONS (3)
  - Somnolence [Unknown]
  - Product use in unapproved indication [Unknown]
  - Off label use [Unknown]
